FAERS Safety Report 20820027 (Version 1)
Quarter: 2022Q2

REPORT INFORMATION
  Report Type: Spontaneous
  Country: US (occurrence: None)
  Receive Date: 20220511
  Receipt Date: 20220511
  Transmission Date: 20220721
  Serious: Yes (Hospitalization, Disabling, Other)
  Sender: FDA-Public Use
  Company Number: None

PATIENT
  Age: 74 Year
  Sex: Male
  Weight: 72.57 kg

DRUGS (7)
  1. ZIEXTENZO [Suspect]
     Active Substance: PEGFILGRASTIM-BMEZ
     Indication: White blood cell disorder
     Dosage: FREQUENCY : ONCE;?
     Dates: start: 20211126, end: 20220107
  2. AMLODIPINE [Concomitant]
     Active Substance: AMLODIPINE BESYLATE
  3. ELIQUIS [Concomitant]
     Active Substance: APIXABAN
  4. VITAMIN D NOS [Concomitant]
     Active Substance: VITAMIN D NOS
  5. SELENIUM [Concomitant]
     Active Substance: SELENIUM
  6. CLARITIN [Concomitant]
     Active Substance: LORATADINE
  7. MSM with Condrioten [Concomitant]

REACTIONS (3)
  - Bone pain [None]
  - White blood cell count increased [None]
  - Anaemia [None]

NARRATIVE: CASE EVENT DATE: 20220117
